FAERS Safety Report 9635799 (Version 1)
Quarter: 2013Q4

REPORT INFORMATION
  Report Type: Spontaneous
  Country: US (occurrence: US)
  Receive Date: 20131021
  Receipt Date: 20131021
  Transmission Date: 20140711
  Serious: No
  Sender: FDA-Public Use
  Company Number: US-PURDUE-USA-2013-0103192

PATIENT
  Sex: Male

DRUGS (1)
  1. BUTRANS [Suspect]
     Indication: PAIN
     Dosage: 10 MCG/HR, WEEKLY

REACTIONS (7)
  - Drug withdrawal syndrome [Unknown]
  - Laceration [Unknown]
  - Product adhesion issue [Unknown]
  - Tinnitus [Unknown]
  - Drug effect increased [Unknown]
  - Euphoric mood [Unknown]
  - Drug effect decreased [Unknown]
